FAERS Safety Report 7487761-2 (Version None)
Quarter: 2011Q2

REPORT INFORMATION
  Report Type: 
  Country: None (occurrence: None)
  Receive Date: 20110518
  Receipt Date: 20110506
  Transmission Date: 20111010
  Serious: Yes (Other)
  Sender: FDA-Public Use
  Company Number: PHHY2011CH34863

PATIENT
  Sex: Female
  Weight: 85 kg

DRUGS (2)
  1. SOLATOL [Concomitant]
     Dosage: 40 MG DAILY
     Route: 048
     Dates: start: 20110418
  2. TASIGNA [Suspect]
     Indication: CHRONIC MYELOID LEUKAEMIA
     Dosage: 400 MG, UNK
     Route: 048
     Dates: start: 20101123, end: 20110411

REACTIONS (5)
  - FATIGUE [None]
  - OROPHARYNGEAL PAIN [None]
  - TINNITUS [None]
  - AUTOIMMUNE THYROIDITIS [None]
  - OEDEMA [None]
